FAERS Safety Report 4701229-5 (Version None)
Quarter: 2005Q2

REPORT INFORMATION
  Report Type: 
  Country: None (occurrence: None)
  Receive Date: 20050628
  Receipt Date: 20050421
  Transmission Date: 20051028
  Serious: Yes (Other)
  Sender: FDA-Public Use
  Company Number: US-GLAXOSMITHKLINE-A0555435A

PATIENT
  Age: 45 Year
  Sex: Male
  Weight: 105.5 kg

DRUGS (2)
  1. SOMINEX [Suspect]
     Indication: INSOMNIA
     Route: 048
     Dates: start: 19990101
  2. BENADRYL [Suspect]

REACTIONS (15)
  - CARPAL TUNNEL SYNDROME [None]
  - CERVICOBRACHIAL SYNDROME [None]
  - CONSTIPATION [None]
  - DEPENDENCE [None]
  - DRUG ABUSER [None]
  - DYSKINESIA [None]
  - DYSPNOEA [None]
  - ECZEMA [None]
  - FATIGUE [None]
  - HEADACHE [None]
  - INTENTIONAL MISUSE [None]
  - PAIN IN EXTREMITY [None]
  - PARAESTHESIA [None]
  - TACHYCARDIA [None]
  - VISUAL DISTURBANCE [None]
